FAERS Safety Report 13727643 (Version 3)
Quarter: 2017Q3

REPORT INFORMATION
  Report Type: Spontaneous
  Country: US (occurrence: US)
  Receive Date: 20170707
  Receipt Date: 20170928
  Transmission Date: 20171127
  Serious: Yes (Hospitalization)
  Sender: FDA-Public Use
  Company Number: US-PFIZER INC-2017288838

PATIENT
  Age: 66 Year
  Sex: Male
  Weight: 77.11 kg

DRUGS (7)
  1. EPLERENONE. [Suspect]
     Active Substance: EPLERENONE
     Dosage: 50 MG, 1X/DAY
     Dates: start: 2014
  2. ERGOCALCIFEROL. [Concomitant]
     Active Substance: ERGOCALCIFEROL
     Indication: VITAMIN D DEFICIENCY
     Dosage: 50000 IU, ONCE EVERY TWO WEEKS
  3. POTASSIUM CITRATE. [Concomitant]
     Active Substance: POTASSIUM CITRATE
     Indication: MINERAL SUPPLEMENTATION
     Dosage: 2 DF, 2X/DAY
  4. EPLERENONE. [Suspect]
     Active Substance: EPLERENONE
     Indication: ADRENAL MASS
     Dosage: 250 MG, DAILY
     Dates: start: 2014
  5. HYDROCHLOROTHIAZIDE. [Concomitant]
     Active Substance: HYDROCHLOROTHIAZIDE
     Indication: BLOOD PRESSURE ABNORMAL
     Dosage: 12.5 MG, 1X/DAY
  6. METOPROLOL. [Concomitant]
     Active Substance: METOPROLOL
     Indication: BLOOD PRESSURE ABNORMAL
     Dosage: 25 MG, 1X/DAY
  7. OMEPRAZOLE. [Concomitant]
     Active Substance: OMEPRAZOLE
     Indication: GASTRIC DISORDER
     Dosage: 40 MG, 1X/DAY (30 MINUTES BEFORE POTASSIUM)

REACTIONS (8)
  - Incorrect dose administered [Recovered/Resolved]
  - Chest pain [Unknown]
  - Presyncope [Recovered/Resolved]
  - Fall [Recovered/Resolved]
  - Asthenia [Unknown]
  - Drug dispensing error [Recovered/Resolved]
  - Dizziness [Recovered/Resolved]
  - Blood pressure increased [Not Recovered/Not Resolved]

NARRATIVE: CASE EVENT DATE: 201703
